FAERS Safety Report 9859317 (Version 2)
Quarter: 2014Q1

REPORT INFORMATION
  Report Type: Spontaneous
  Country: DE (occurrence: IL)
  Receive Date: 20140131
  Receipt Date: 20140131
  Transmission Date: 20141002
  Serious: Yes (Hospitalization)
  Sender: FDA-Public Use
  Company Number: IL-PFIZER INC-2014024266

PATIENT
  Age: 40 Year
  Sex: Female

DRUGS (3)
  1. SALAZOPYRIN [Suspect]
     Indication: COLITIS ULCERATIVE
     Dosage: 2 G, DAILY
  2. SALAZOPYRIN [Suspect]
     Dosage: 4 G, DAILY
  3. SALAZOPYRIN [Suspect]
     Dosage: 3 G, DAILY

REACTIONS (6)
  - Eosinophilic pneumonia [Recovered/Resolved]
  - Sinus tachycardia [Recovered/Resolved]
  - Rash [Recovered/Resolved]
  - Headache [Recovered/Resolved]
  - Insomnia [Recovered/Resolved]
  - Drug hypersensitivity [Unknown]
